FAERS Safety Report 13902164 (Version 1)
Quarter: 2017Q3

REPORT INFORMATION
  Report Type: Spontaneous
  Country: US (occurrence: US)
  Receive Date: 20170824
  Receipt Date: 20170824
  Transmission Date: 20171127
  Serious: Yes (Other)
  Sender: FDA-Public Use
  Company Number: US-ROCHE-1130128

PATIENT
  Sex: Female

DRUGS (6)
  1. HERCEPTIN [Suspect]
     Active Substance: TRASTUZUMAB
     Dosage: 168 MG IN 100 CC OF NORMAL SALINE OVER 30 MINUTES
     Route: 065
     Dates: start: 19990521
  2. TAMOXIFEN [Concomitant]
     Active Substance: TAMOXIFEN
     Dosage: 60000 UNITS
     Route: 058
  3. G-CSF [Concomitant]
     Active Substance: GRANULOCYTE COLONY-STIMULATING FACTOR NOS
     Route: 058
  4. AREDIA [Concomitant]
     Active Substance: PAMIDRONATE DISODIUM
  5. HERCEPTIN [Suspect]
     Active Substance: TRASTUZUMAB
     Indication: BREAST CANCER
     Route: 065
     Dates: start: 19990521
  6. TAXOL [Concomitant]
     Active Substance: PACLITAXEL
     Dosage: 130 MG IN 250 CC OF NORMAL SALINE OVER 1 HOUR
     Route: 065

REACTIONS (3)
  - Fatigue [Unknown]
  - Anaemia [Unknown]
  - Neutropenia [Unknown]
